FAERS Safety Report 23126874 (Version 2)
Quarter: 2023Q4

REPORT INFORMATION
  Report Type: Spontaneous
  Country: FR (occurrence: FR)
  Receive Date: 20231030
  Receipt Date: 20231205
  Transmission Date: 20240109
  Serious: Yes (Hospitalization)
  Sender: FDA-Public Use
  Company Number: FR-Merck Healthcare KGaA-2023455897

PATIENT
  Age: 13 Year
  Sex: Male
  Weight: 82 kg

DRUGS (4)
  1. SOMATROPIN [Suspect]
     Active Substance: SOMATROPIN
     Indication: Muscular weakness
     Dosage: 2.500MG QD
     Route: 058
     Dates: start: 20230303
  2. SOMATROPIN [Suspect]
     Active Substance: SOMATROPIN
     Dosage: 2.500MG QD
     Route: 058
     Dates: start: 20230408
  3. SAIZEN [Suspect]
     Active Substance: SOMATROPIN
     Indication: Muscular weakness
     Dosage: 2.5 MG, QD
     Route: 058
     Dates: start: 20230303
  4. SAIZEN [Suspect]
     Active Substance: SOMATROPIN
     Dosage: 2.5 MG, QD
     Route: 058
     Dates: start: 20230408

REACTIONS (1)
  - Intracranial pressure increased [Not Recovered/Not Resolved]

NARRATIVE: CASE EVENT DATE: 20230613
